FAERS Safety Report 23370628 (Version 5)
Quarter: 2025Q3

REPORT INFORMATION
  Report Type: Spontaneous
  Country: US (occurrence: US)
  Receive Date: 20240105
  Receipt Date: 20250725
  Transmission Date: 20251021
  Serious: Yes (Other)
  Sender: SANOFI AVENTIS
  Company Number: US-SA-SAC20240101000044

PATIENT
  Age: 49 Year
  Sex: Male

DRUGS (1)
  1. DUPIXENT [Suspect]
     Active Substance: DUPILUMAB
     Indication: Nasal polyps
     Dosage: 300 MG, QOW
     Route: 058
     Dates: start: 202311

REACTIONS (9)
  - Pneumonia [Unknown]
  - Pyrexia [Unknown]
  - Chest pain [Unknown]
  - Nasal congestion [Not Recovered/Not Resolved]
  - Insomnia [Unknown]
  - Nasal polyps [Unknown]
  - Condition aggravated [Unknown]
  - Sinus congestion [Unknown]
  - Rhinorrhoea [Unknown]

NARRATIVE: CASE EVENT DATE: 20231101
